FAERS Safety Report 10479789 (Version 2)
Quarter: 2014Q3

REPORT INFORMATION
  Report Type: Report from Study
  Country: DE (occurrence: DE)
  Receive Date: 20140928
  Receipt Date: 20140929
  Transmission Date: 20150326
  Serious: Yes (Other)
  Sender: FDA-Public Use
  Company Number: DE-009507513-1409DEU009948

PATIENT
  Age: 50 Year
  Sex: Male
  Weight: 98 kg

DRUGS (5)
  1. RALTEGRAVIR POTASSIUM [Suspect]
     Active Substance: RALTEGRAVIR POTASSIUM
     Indication: HIV INFECTION
     Dosage: 400 MG, BID
     Route: 048
     Dates: start: 20131220, end: 20140620
  2. TRUVADA [Suspect]
     Active Substance: EMTRICITABINE\TENOFOVIR DISOPROXIL FUMARATE
     Indication: HIV INFECTION
     Dosage: TOTAL DAILY DOSE: 400MG/490MG, BID
     Route: 048
     Dates: start: 20131220, end: 20140403
  3. DEKRISTOL [Concomitant]
     Active Substance: CHOLECALCIFEROL
     Indication: VITAMIN D DEFICIENCY
     Dosage: UNK
  4. FOSTER (BECLOMETHASONE DIPROPIONATE (+) FORMOTEROL FUMARATE) [Concomitant]
     Indication: ASTHMA
     Dosage: UNK
  5. ALBUTEROL. [Concomitant]
     Active Substance: ALBUTEROL
     Indication: ASTHMA
     Dosage: UNK

REACTIONS (4)
  - Kaposi^s sarcoma [Not Recovered/Not Resolved]
  - Proteinuria [Not Recovered/Not Resolved]
  - Spirochaetal infection [Not Recovered/Not Resolved]
  - Albuminuria [Not Recovered/Not Resolved]

NARRATIVE: CASE EVENT DATE: 20140317
